APPROVED DRUG PRODUCT: FOSCARNET SODIUM
Active Ingredient: FOSCARNET SODIUM
Strength: 6GM/250ML (24MG/ML)
Dosage Form/Route: SOLUTION;INTRAVENOUS
Application: A213807 | Product #001 | TE Code: AP
Applicant: AVET LIFESCIENCES PRIVATE LTD
Approved: Jun 5, 2023 | RLD: No | RS: No | Type: RX